FAERS Safety Report 16243886 (Version 1)
Quarter: 2019Q2

REPORT INFORMATION
  Report Type: Spontaneous
  Country: US (occurrence: US)
  Receive Date: 20190426
  Receipt Date: 20190426
  Transmission Date: 20190711
  Serious: No
  Sender: FDA-Public Use
  Company Number: US-TEVA-2019-US-1038084

PATIENT

DRUGS (1)
  1. BUPRENORPHINE. [Suspect]
     Active Substance: BUPRENORPHINE
     Indication: ANALGESIC THERAPY
     Route: 062

REACTIONS (5)
  - Inadequate analgesia [Unknown]
  - Product quality issue [Unknown]
  - Product formulation issue [Unknown]
  - Rash macular [Unknown]
  - Product adhesion issue [Unknown]
